FAERS Safety Report 18659777 (Version 1)
Quarter: 2020Q4

REPORT INFORMATION
  Report Type: Spontaneous
  Country: US (occurrence: US)
  Receive Date: 20201223
  Receipt Date: 20201223
  Transmission Date: 20210114
  Serious: No
  Sender: FDA-Public Use
  Company Number: US-ASCENT PHARMACEUTICALS, INC.-2103432

PATIENT

DRUGS (1)
  1. OXYCODONE AND ACETAMINOPHEN [Suspect]
     Active Substance: ACETAMINOPHEN\OXYCODONE HYDROCHLORIDE
     Indication: PRODUCT USE IN UNAPPROVED INDICATION
     Route: 048

REACTIONS (6)
  - Hyperhidrosis [Unknown]
  - Product substitution issue [Unknown]
  - Abdominal pain upper [Unknown]
  - Vomiting [Unknown]
  - Product use in unapproved indication [Unknown]
  - Nausea [Unknown]
